FAERS Safety Report 4342276-5 (Version None)
Quarter: 2004Q2

REPORT INFORMATION
  Report Type: 
  Country: None (occurrence: None)
  Receive Date: 20040415
  Receipt Date: 20040408
  Transmission Date: 20050107
  Serious: No
  Sender: FDA-Public Use
  Company Number: 2004UW07165

PATIENT
  Sex: Female

DRUGS (3)
  1. ARIMIDEX [Suspect]
     Dosage: 1 MG
  2. HORSE CHESTNUT [Suspect]
  3. RUSCUS ACULEATUS ^BUTCHER'S BROOM^ [Suspect]

REACTIONS (3)
  - CARDIOVASCULAR DISORDER [None]
  - DRUG INTERACTION [None]
  - RADIATION INJURY [None]
